FAERS Safety Report 7389362-3 (Version None)
Quarter: 2011Q2

REPORT INFORMATION
  Report Type: 
  Country: None (occurrence: None)
  Receive Date: 20110401
  Receipt Date: 20110321
  Transmission Date: 20111010
  Serious: Yes (Hospitalization)
  Sender: FDA-Public Use
  Company Number: B0707078A

PATIENT
  Sex: Male

DRUGS (16)
  1. VFEND [Suspect]
     Indication: LUNG DISORDER
     Dosage: 200MG TWICE PER DAY
     Route: 048
     Dates: start: 20101229, end: 20110112
  2. IRBESARTAN [Concomitant]
     Dosage: 150MG PER DAY
  3. ROCEPHIN [Concomitant]
     Dates: start: 20101229, end: 20110102
  4. COLCHIMAX [Concomitant]
  5. TAZOCILLINE [Concomitant]
     Indication: ANTIBIOTIC THERAPY
     Dosage: 4G THREE TIMES PER DAY
     Dates: start: 20101213
  6. CIFLOX [Concomitant]
     Dates: start: 20110102
  7. CRESTOR [Concomitant]
     Dosage: 5MG PER DAY
  8. AMIKLIN [Concomitant]
     Indication: ANTIBIOTIC THERAPY
     Dates: start: 20101215
  9. PERMIXON [Concomitant]
     Dosage: 160MG PER DAY
  10. TIENAM [Concomitant]
     Indication: ANTIBIOTIC THERAPY
     Dates: start: 20101215
  11. AMBISOME [Suspect]
     Indication: LUNG DISORDER
     Dosage: 800MG PER DAY
     Route: 042
     Dates: start: 20110112, end: 20110112
  12. CLAVENTIN [Suspect]
     Indication: LUNG DISORDER
     Dosage: 1UNIT SEE DOSAGE TEXT
     Route: 042
     Dates: start: 20110112, end: 20110114
  13. TAMSULOSINE [Concomitant]
     Dosage: .4MG PER DAY
  14. FLAGYL [Concomitant]
     Indication: ANTIBIOTIC THERAPY
     Dates: start: 20101215
  15. VIDAZA [Concomitant]
     Indication: ACUTE MYELOID LEUKAEMIA
  16. TARGOCID [Concomitant]
     Dates: start: 20101231

REACTIONS (15)
  - CONDITION AGGRAVATED [None]
  - METABOLIC ACIDOSIS [None]
  - ZYGOMYCOSIS [None]
  - LUNG DISORDER [None]
  - TUBULOINTERSTITIAL NEPHRITIS [None]
  - OLIGURIA [None]
  - HYPONATRAEMIA [None]
  - HYPERKALAEMIA [None]
  - RENAL FAILURE ACUTE [None]
  - RENAL TUBULAR NECROSIS [None]
  - SIMPLEX VIRUS TEST POSITIVE [None]
  - ANURIA [None]
  - STENOTROPHOMONAS INFECTION [None]
  - HYPOCALCAEMIA [None]
  - THROMBOCYTOPENIA [None]
